FAERS Safety Report 20697790 (Version 1)
Quarter: 2022Q2

REPORT INFORMATION
  Report Type: Spontaneous
  Country: CA (occurrence: CA)
  Receive Date: 20220411
  Receipt Date: 20220411
  Transmission Date: 20220721
  Serious: Yes (Death, Other)
  Sender: FDA-Public Use
  Company Number: CA-BAXTER-2022BAX007922

PATIENT
  Age: 4 Year

DRUGS (3)
  1. CYCLOPHOSPHAMIDE [Suspect]
     Active Substance: CYCLOPHOSPHAMIDE
     Indication: Adrenoleukodystrophy
     Route: 065
  2. ETOPOSIDE [Suspect]
     Active Substance: ETOPOSIDE
     Indication: Adrenoleukodystrophy
     Route: 065
  3. RITUXIMAB [Suspect]
     Active Substance: RITUXIMAB
     Indication: Adrenoleukodystrophy
     Route: 065

REACTIONS (4)
  - Encephalopathy [Fatal]
  - Product use in unapproved indication [Fatal]
  - Respiratory failure [Fatal]
  - Malignant neoplasm progression [Fatal]
